FAERS Safety Report 7252760-2 (Version None)
Quarter: 2011Q1

REPORT INFORMATION
  Report Type: 
  Country: None (occurrence: None)
  Receive Date: 20110129
  Receipt Date: 20100118
  Transmission Date: 20110831
  Serious: No
  Sender: FDA-Public Use
  Company Number: US-ABBOTT-10P-163-0620866-00

PATIENT
  Sex: Female
  Weight: 49 kg

DRUGS (7)
  1. CALCIUM [Concomitant]
     Indication: ROUTINE HEALTH MAINTENANCE
  2. METHOTREXATE [Concomitant]
     Indication: JUVENILE ARTHRITIS
  3. HUMIRA [Suspect]
     Indication: JUVENILE ARTHRITIS
     Dates: start: 20091214
  4. FOLIC ACID [Concomitant]
     Indication: JUVENILE ARTHRITIS
  5. VITAMIN D [Concomitant]
     Indication: ROUTINE HEALTH MAINTENANCE
  6. ALEVE [Concomitant]
     Indication: JUVENILE ARTHRITIS
  7. MULTIPLE VITAMINS WITH IRON [Concomitant]
     Indication: ANAEMIA

REACTIONS (1)
  - INJECTION SITE PAIN [None]
